FAERS Safety Report 13442694 (Version 2)
Quarter: 2017Q2

REPORT INFORMATION
  Report Type: Spontaneous
  Country: US (occurrence: US)
  Receive Date: 20170414
  Receipt Date: 20170512
  Transmission Date: 20170830
  Serious: Yes (Other)
  Sender: FDA-Public Use
  Company Number: US-PFIZER INC-2017156581

PATIENT
  Age: 81 Year
  Sex: Female
  Weight: 54.43 kg

DRUGS (1)
  1. ATORVASTATIN CALCIUM. [Suspect]
     Active Substance: ATORVASTATIN CALCIUM
     Dosage: UNK
     Dates: start: 20170430

REACTIONS (5)
  - Diplopia [Recovered/Resolved]
  - Cardiac flutter [Recovering/Resolving]
  - Palpitations [Not Recovered/Not Resolved]
  - Insomnia [Unknown]
  - Drug hypersensitivity [Unknown]

NARRATIVE: CASE EVENT DATE: 20170430
